FAERS Safety Report 17958398 (Version 1)
Quarter: 2020Q2

REPORT INFORMATION
  Report Type: Spontaneous
  Country: FR (occurrence: FR)
  Receive Date: 20200629
  Receipt Date: 20200629
  Transmission Date: 20200714
  Serious: Yes (Hospitalization)
  Sender: FDA-Public Use
  Company Number: FR-ELI_LILLY_AND_COMPANY-FR202006011199

PATIENT
  Age: 71 Year
  Sex: Male

DRUGS (8)
  1. VENLAFAXINE [Suspect]
     Active Substance: VENLAFAXINE HYDROCHLORIDE
     Indication: BEREAVEMENT
     Dosage: 4CP/J PUIS DIMINUTION ? 3CP/J
     Route: 048
     Dates: start: 20200523
  2. FUROSEMIDE. [Suspect]
     Active Substance: FUROSEMIDE
     Indication: CARDIOMYOPATHY
     Dosage: 20 MG, DAILY
     Route: 048
     Dates: start: 201810
  3. BISOPROLOL FUMERATE [Suspect]
     Active Substance: BISOPROLOL FUMARATE
     Indication: CARDIOMYOPATHY
     Dosage: 5 MG, DAILY
     Route: 048
     Dates: start: 201810
  4. PAROXETINE. [Concomitant]
     Active Substance: PAROXETINE
     Indication: DEPRESSION
     Route: 048
     Dates: start: 20190118, end: 20190310
  5. FLUOXETINE HYDROCHLORIDE. [Suspect]
     Active Substance: FLUOXETINE HYDROCHLORIDE
     Indication: BEREAVEMENT
     Dosage: UNK UNK, UNKNOWN
     Route: 048
     Dates: start: 20190311, end: 20190522
  6. MIRTAZAPINE. [Suspect]
     Active Substance: MIRTAZAPINE
     Indication: BEREAVEMENT
     Dosage: 30 MG, DAILY
     Route: 048
  7. ALPRAZOLAM. [Suspect]
     Active Substance: ALPRAZOLAM
     Indication: BEREAVEMENT
     Dosage: UNK UNK, UNKNOWN
     Route: 048
     Dates: start: 20190118
  8. AMLODIPINE [Suspect]
     Active Substance: AMLODIPINE BESYLATE
     Indication: CARDIOMYOPATHY
     Dosage: 5 MG, DAILY
     Route: 048
     Dates: start: 201811

REACTIONS (3)
  - Rhabdomyolysis [Recovered/Resolved]
  - Myalgia [Not Recovered/Not Resolved]
  - Condition aggravated [Not Recovered/Not Resolved]

NARRATIVE: CASE EVENT DATE: 20190525
